FAERS Safety Report 9271349 (Version 1)
Quarter: 2013Q2

REPORT INFORMATION
  Report Type: Spontaneous
  Country: US (occurrence: US)
  Receive Date: 20130506
  Receipt Date: 20130506
  Transmission Date: 20140414
  Serious: No
  Sender: FDA-Public Use
  Company Number: US-PFIZER INC-2013137434

PATIENT
  Age: 62 Year
  Sex: Female
  Weight: 65.76 kg

DRUGS (5)
  1. LYRICA [Suspect]
     Indication: NEURALGIA
     Dosage: 50 MG, 3X/DAY
     Route: 048
     Dates: start: 201304, end: 20130430
  2. DYAZIDE [Concomitant]
     Indication: HYPERTENSION
     Dosage: UNK
  3. PROTONIX [Concomitant]
     Dosage: UNK
  4. SINGULAIR [Concomitant]
     Indication: HYPERSENSITIVITY
     Dosage: UNK
  5. NORCO [Concomitant]
     Indication: PAIN
     Dosage: UNK

REACTIONS (5)
  - Mouth ulceration [Unknown]
  - Pharyngeal ulceration [Unknown]
  - Stomatitis [Unknown]
  - Ulcer [Unknown]
  - Throat irritation [Unknown]
